FAERS Safety Report 11332921 (Version 1)
Quarter: 2015Q3

REPORT INFORMATION
  Report Type: Spontaneous
  Country: US (occurrence: US)
  Receive Date: 20150803
  Receipt Date: 20150803
  Transmission Date: 20151125
  Serious: Yes (Hospitalization, Other)
  Sender: FDA-Public Use
  Company Number: US-ELI_LILLY_AND_COMPANY-US200601003516

PATIENT
  Age: 61 Year
  Sex: Female
  Weight: 90.7 kg

DRUGS (5)
  1. DEPAKOTE [Concomitant]
     Active Substance: DIVALPROEX SODIUM
  2. ASPIRIN. [Concomitant]
     Active Substance: ASPIRIN
  3. ZYPREXA [Suspect]
     Active Substance: OLANZAPINE
     Indication: BIPOLAR DISORDER
     Dates: start: 1999, end: 200508
  4. LANOXIN [Concomitant]
     Active Substance: DIGOXIN
     Dosage: 0.25 MG, DAILY (1/D)
  5. ATIVAN [Concomitant]
     Active Substance: LORAZEPAM
     Indication: SLEEP DISORDER
     Dosage: 0.5 MG, OTHER
     Route: 042
     Dates: start: 20050319, end: 20050320

REACTIONS (15)
  - Blood triglycerides increased [Recovered/Resolved]
  - Blood alkaline phosphatase increased [Recovered/Resolved]
  - Type 2 diabetes mellitus [Unknown]
  - Ventricular extrasystoles [Unknown]
  - Syncope [Unknown]
  - Blood cholesterol increased [Recovered/Resolved]
  - Pleurisy [Unknown]
  - Urinary tract infection [Recovering/Resolving]
  - Alanine aminotransferase increased [Recovering/Resolving]
  - Aspartate aminotransferase increased [Recovering/Resolving]
  - Atrial tachycardia [Unknown]
  - Chest pain [Unknown]
  - Gamma-glutamyltransferase increased [Unknown]
  - Weight increased [Unknown]
  - Atrial fibrillation [Unknown]

NARRATIVE: CASE EVENT DATE: 20030709
